FAERS Safety Report 5103085-2 (Version None)
Quarter: 2006Q3

REPORT INFORMATION
  Report Type: 
  Country: None (occurrence: None)
  Receive Date: 20060907
  Receipt Date: 20060828
  Transmission Date: 20061208
  Serious: Yes (Hospitalization, Other)
  Sender: FDA-Public Use
  Company Number: HQWYE057028AUG06

PATIENT
  Age: 59 Year
  Sex: Female

DRUGS (6)
  1. NEORAL [Suspect]
     Indication: PROPHYLAXIS AGAINST TRANSPLANT REJECTION
     Dosage: PER PROTOCOL
     Dates: start: 20060420, end: 20060615
  2. CELLCEPT [Concomitant]
  3. PREDNISOLONE [Concomitant]
  4. METOPROLOL SUCCINATE [Concomitant]
  5. ATACAND [Concomitant]
  6. ATACAND [Concomitant]

REACTIONS (1)
  - LYMPHOCELE [None]
